FAERS Safety Report 17787546 (Version 2)
Quarter: 2020Q2

REPORT INFORMATION
  Report Type: Spontaneous
  Country: AR (occurrence: AR)
  Receive Date: 20200514
  Receipt Date: 20200525
  Transmission Date: 20200714
  Serious: No
  Sender: FDA-Public Use
  Company Number: AR-ASTRAZENECA-2020SE63209

PATIENT
  Age: 23942 Day
  Sex: Female

DRUGS (2)
  1. ATROVENT [Concomitant]
     Active Substance: IPRATROPIUM BROMIDE
  2. FREVIA [Suspect]
     Active Substance: BUDESONIDE\FORMOTEROL
     Dosage: 160 MCG FOUR TIMES A DAY
     Route: 055
     Dates: start: 2015

REACTIONS (3)
  - Asthma [Recovered/Resolved]
  - Dyspepsia [Unknown]
  - Cholelithiasis [Unknown]

NARRATIVE: CASE EVENT DATE: 20200428
